FAERS Safety Report 20459929 (Version 2)
Quarter: 2022Q1

REPORT INFORMATION
  Report Type: Other
  Country: US (occurrence: None)
  Receive Date: 20220211
  Receipt Date: 20220322
  Transmission Date: 20220423
  Serious: Yes (Other)
  Sender: FDA-Public Use
  Company Number: US-ROCHE-3019599

PATIENT
  Sex: Female
  Weight: 95.340 kg

DRUGS (7)
  1. OCREVUS [Suspect]
     Active Substance: OCRELIZUMAB
     Indication: Primary progressive multiple sclerosis
     Dosage: (PRESCRIBED AS INFUSE 300 MG IV ON DAY 1 AND DAY 15, THEN INFUSE 600 MG ONCE IN 6 MONTH)?DATE OF TRE
     Route: 042
  2. HYDROCODONE [Concomitant]
     Active Substance: HYDROCODONE
  3. ZOFRAN [Concomitant]
     Active Substance: ONDANSETRON HYDROCHLORIDE
  4. CITALOPRAM [Concomitant]
     Active Substance: CITALOPRAM HYDROBROMIDE
  5. PRAVASTATIN [Concomitant]
     Active Substance: PRAVASTATIN
  6. DIAZEPAM [Concomitant]
     Active Substance: DIAZEPAM
     Route: 048
  7. PRILOSEC [Concomitant]
     Active Substance: OMEPRAZOLE MAGNESIUM

REACTIONS (2)
  - COVID-19 pneumonia [Recovering/Resolving]
  - Off label use [Unknown]
